FAERS Safety Report 10196253 (Version 2)
Quarter: 2014Q3

REPORT INFORMATION
  Report Type: Spontaneous
  Country: AU (occurrence: None)
  Receive Date: 20140521
  Receipt Date: 20140722
  Transmission Date: 20150326
  Serious: Yes (Hospitalization)
  Sender: FDA-Public Use
  Company Number: AUR-APL-2014-05811

PATIENT
  Age: 0 Day
  Sex: Female

DRUGS (3)
  1. EFEXOR (VENLAFAXINE HYDROCHLORIDE) [Concomitant]
  2. MULTIVITAMINS (MULTIVITAMINS) [Concomitant]
     Active Substance: VITAMINS
  3. AURO-QUETIAPINE 200 (QUETIAPINE) FILM-COATED TABLET, 200MG [Suspect]
     Active Substance: QUETIAPINE
     Indication: PRODUCT USED FOR UNKNOWN INDICATION
     Dosage: 200 MG, 1 D, TRANSPLACENTAL
     Route: 064

REACTIONS (3)
  - Maternal drugs affecting foetus [None]
  - Somnolence [None]
  - Hypothermia neonatal [None]

NARRATIVE: CASE EVENT DATE: 20120521
